FAERS Safety Report 13356263 (Version 2)
Quarter: 2017Q2

REPORT INFORMATION
  Report Type: Spontaneous
  Country: ES (occurrence: ES)
  Receive Date: 20170321
  Receipt Date: 20170427
  Transmission Date: 20170830
  Serious: Yes (Hospitalization)
  Sender: FDA-Public Use
  Company Number: ES-SUNOVION-2017SUN001080

PATIENT

DRUGS (13)
  1. FUROSEMIDE. [Concomitant]
     Active Substance: FUROSEMIDE
  2. ENALAPRIL [Concomitant]
     Active Substance: ENALAPRIL
  3. GLYCOPYRROLATE. [Suspect]
     Active Substance: GLYCOPYRROLATE
     Indication: CHRONIC OBSTRUCTIVE PULMONARY DISEASE
     Dosage: UNK, QD
     Route: 055
     Dates: start: 201405, end: 201408
  4. DOXAZOSIN [Concomitant]
     Active Substance: DOXAZOSIN\DOXAZOSIN MESYLATE
  5. DARBEPOETIN ALFA [Concomitant]
     Active Substance: DARBEPOETIN ALFA
  6. ALLOPURINOL. [Concomitant]
     Active Substance: ALLOPURINOL
  7. SODIUM BICARBONATE. [Concomitant]
     Active Substance: SODIUM BICARBONATE
  8. ATORVASTATIN [Concomitant]
     Active Substance: ATORVASTATIN
  9. OMEPRAZOLE. [Concomitant]
     Active Substance: OMEPRAZOLE
  10. SPIRONOLACTONE. [Concomitant]
     Active Substance: SPIRONOLACTONE
  11. CALCIUM POLYSTYRENE SULFONATE [Concomitant]
     Active Substance: CALCIUM POLYSTYRENE SULFONATE
  12. ALFUZOSIN [Concomitant]
     Active Substance: ALFUZOSIN
  13. PREDNISONE. [Concomitant]
     Active Substance: PREDNISONE

REACTIONS (3)
  - Renal impairment [Recovered/Resolved]
  - Fluid retention [Unknown]
  - Urine output decreased [Unknown]
